FAERS Safety Report 20875721 (Version 1)
Quarter: 2022Q2

REPORT INFORMATION
  Report Type: Spontaneous
  Country: NL (occurrence: NL)
  Receive Date: 20220526
  Receipt Date: 20220526
  Transmission Date: 20220721
  Serious: Yes (Other)
  Sender: FDA-Public Use
  Company Number: None

PATIENT
  Age: 78 Year
  Sex: Female
  Weight: 74.8 kg

DRUGS (7)
  1. DENOSUMAB [Suspect]
     Active Substance: DENOSUMAB
     Indication: Osteoporosis
     Dosage: 1 INJECTION EVERY 6 MONTHS
     Route: 065
     Dates: start: 2016, end: 20201022
  2. CLOPIDOGREL [Concomitant]
     Active Substance: CLOPIDOGREL BISULFATE
     Dosage: TABLET, 75 MG (MILLIGRAM)
  3. SIMVASTATIN [Concomitant]
     Active Substance: SIMVASTATIN
     Dosage: FILM COATED TABLET, 20MG (MILLIGRAM)
  4. AMLODIPINE [Concomitant]
     Active Substance: AMLODIPINE BESYLATE
     Dosage: TABLET, 5 MG (MILLIGRAM)
  5. CALCIUM CARBONATE\VITAMIN D [Concomitant]
     Active Substance: CALCIUM CARBONATE\VITAMIN D
     Dosage: CHEWABLE TABLET, 2,5 G (GRAM)/880 UNITS
  6. ASPIRIN [Concomitant]
     Active Substance: ASPIRIN
     Dosage: TABLET, 80 MG (MILLIGRAM)
  7. PANTOPRAZOLE SODIUM [Concomitant]
     Active Substance: PANTOPRAZOLE SODIUM
     Dosage: STOMACH JUICE RESISTANT TABLET, 40 MG (MILLIGRAM)

REACTIONS (1)
  - Stress fracture [Unknown]

NARRATIVE: CASE EVENT DATE: 20201022
